FAERS Safety Report 17919417 (Version 1)
Quarter: 2020Q2

REPORT INFORMATION
  Report Type: Spontaneous
  Country: US (occurrence: US)
  Receive Date: 20200619
  Receipt Date: 20200619
  Transmission Date: 20200714
  Serious: No
  Sender: FDA-Public Use
  Company Number: US-CATALYST PHARMACEUTICALS, INC-2020CAT00175

PATIENT
  Age: 68 Year
  Sex: Female
  Weight: 89.34 kg

DRUGS (16)
  1. FIRDAPSE [Suspect]
     Active Substance: AMIFAMPRIDINE
     Dosage: 10 MG, 1X/DAY (AT NIGHT)
     Route: 048
     Dates: start: 20190213
  2. LEVOTHYROXINE. [Concomitant]
     Active Substance: LEVOTHYROXINE
  3. GLIMEPIRIDE. [Concomitant]
     Active Substance: GLIMEPIRIDE
  4. BENZONATATE. [Concomitant]
     Active Substance: BENZONATATE
  5. GAMMAGARD [Concomitant]
     Active Substance: HUMAN IMMUNOGLOBULIN G
  6. SEROQUEL [Concomitant]
     Active Substance: QUETIAPINE FUMARATE
  7. DUONEB [Concomitant]
     Active Substance: ALBUTEROL SULFATE\IPRATROPIUM BROMIDE
  8. ZOLOFT [Concomitant]
     Active Substance: SERTRALINE HYDROCHLORIDE
  9. UNSPECIFIED MEDICATION (^GLEUTEROSTAN ER^) [Concomitant]
  10. VITAMIN D2 [Concomitant]
     Active Substance: ERGOCALCIFEROL
  11. ATORVASTATIN [Concomitant]
     Active Substance: ATORVASTATIN
  12. FIRDAPSE [Suspect]
     Active Substance: AMIFAMPRIDINE
     Indication: MYASTHENIC SYNDROME
     Dosage: 15 MG, 2X/DAY (MORNING AND LUNCH)
     Route: 048
     Dates: start: 20190213
  13. LOSARTAN. [Concomitant]
     Active Substance: LOSARTAN
  14. MUCINEX [Concomitant]
     Active Substance: GUAIFENESIN
  15. VITAMIN D COMPLEX [Concomitant]
  16. ALBUTEROL INHALER [Concomitant]
     Active Substance: ALBUTEROL

REACTIONS (1)
  - Rash pruritic [Not Recovered/Not Resolved]

NARRATIVE: CASE EVENT DATE: 202004
